FAERS Safety Report 13691654 (Version 1)
Quarter: 2017Q2

REPORT INFORMATION
  Report Type: Report from Study
  Country: US (occurrence: US)
  Receive Date: 20170626
  Receipt Date: 20170626
  Transmission Date: 20170830
  Serious: Yes (Death, Hospitalization)
  Sender: FDA-Public Use
  Company Number: US-ACTELION-A-NJ2017-152456

PATIENT
  Age: 63 Year
  Sex: Female
  Weight: 83.45 kg

DRUGS (6)
  1. OPSUMIT [Suspect]
     Active Substance: MACITENTAN
     Indication: PULMONARY ARTERIAL HYPERTENSION
     Dosage: 10 MG, QD
     Route: 048
     Dates: start: 201405, end: 20170531
  2. UPTRAVI [Suspect]
     Active Substance: SELEXIPAG
     Indication: PULMONARY ARTERIAL HYPERTENSION
     Dosage: 600 MCG, BID
     Route: 048
     Dates: start: 20170401, end: 20170509
  3. COUMADIN [Concomitant]
     Active Substance: WARFARIN SODIUM
  4. UPTRAVI [Suspect]
     Active Substance: SELEXIPAG
     Dosage: 800 MCG, BID
     Route: 048
  5. UPTRAVI [Suspect]
     Active Substance: SELEXIPAG
     Dosage: 1200 MCG, BID
     Route: 048
  6. REVATIO [Concomitant]
     Active Substance: SILDENAFIL CITRATE

REACTIONS (26)
  - Decreased appetite [Unknown]
  - Vomiting [Unknown]
  - Fluid retention [Unknown]
  - Cough [Unknown]
  - General physical health deterioration [Unknown]
  - Fatigue [Unknown]
  - Abdominal discomfort [Unknown]
  - Weight increased [Unknown]
  - Abdominal distension [Unknown]
  - Pain [Unknown]
  - Oedema [Unknown]
  - Cardiac arrest [Unknown]
  - Syncope [Unknown]
  - Dyspnoea [Unknown]
  - Weight decreased [Unknown]
  - Paranasal sinus hypersecretion [Unknown]
  - Feeling abnormal [Unknown]
  - Pneumonia [Unknown]
  - Sepsis [Unknown]
  - Right ventricular failure [Fatal]
  - Pulmonary arterial hypertension [Fatal]
  - Disease progression [Fatal]
  - Staphylococcal infection [Unknown]
  - Flatulence [Unknown]
  - Mental disorder [Unknown]
  - Malaise [Unknown]

NARRATIVE: CASE EVENT DATE: 20170525
